FAERS Safety Report 17475711 (Version 4)
Quarter: 2020Q3

REPORT INFORMATION
  Report Type: Spontaneous
  Country: US (occurrence: US)
  Receive Date: 20200228
  Receipt Date: 20200817
  Transmission Date: 20201102
  Serious: No
  Sender: FDA-Public Use
  Company Number: US-EMD SERONO-9147865

PATIENT
  Age: 40 Year
  Sex: Female

DRUGS (1)
  1. REBIF [Suspect]
     Active Substance: INTERFERON BETA-1A
     Indication: MULTIPLE SCLEROSIS
     Route: 058
     Dates: start: 20190405

REACTIONS (6)
  - Pain [Unknown]
  - Alopecia [Unknown]
  - Hormone level abnormal [Unknown]
  - Influenza like illness [Unknown]
  - Multiple sclerosis [Unknown]
  - Dizziness [Unknown]
